FAERS Safety Report 5030566-2 (Version None)
Quarter: 2006Q2

REPORT INFORMATION
  Report Type: 
  Country: None (occurrence: None)
  Receive Date: 20060615
  Receipt Date: 20060531
  Transmission Date: 20061013
  Serious: Yes (Death, Hospitalization)
  Sender: FDA-Public Use
  Company Number: 2006001142

PATIENT
  Age: 59 Year
  Sex: Male

DRUGS (2)
  1. TARCEVA [Suspect]
     Indication: NON-SMALL CELL LUNG CANCER
     Dosage: 150 MG (QD) ORAL
     Route: 048
     Dates: start: 20060420, end: 20060529
  2. COUMADIN [Concomitant]

REACTIONS (5)
  - COUGH [None]
  - HAEMATOCHEZIA [None]
  - HYPOXIA [None]
  - INTERNATIONAL NORMALISED RATIO INCREASED [None]
  - RESPIRATORY DISORDER [None]
